FAERS Safety Report 8804458 (Version 1)
Quarter: 2012Q4

REPORT INFORMATION
  Report Type: 
  Country: US (occurrence: US)
  Receive Date: 20120924
  Receipt Date: 20120924
  Transmission Date: 20130627
  Serious: Yes (Hospitalization)
  Sender: FDA-Public Use
  Company Number: US-BAYER-2012-097552

PATIENT
  Age: 22 Year
  Sex: Female
  Weight: 61.22 kg

DRUGS (9)
  1. YASMIN [Suspect]
     Indication: MENSTRUATION IRREGULAR
     Dosage: UNK
     Dates: start: 20070626, end: 200708
  2. YASMIN [Suspect]
     Indication: DYSMENORRHOEA
  3. OCELLA [Suspect]
     Indication: MENSTRUATION IRREGULAR
     Dosage: UNK
     Dates: start: 20081016, end: 20110322
  4. OCELLA [Suspect]
     Indication: DYSMENORRHOEA
  5. DIETARY SUPPLEMENTS [Concomitant]
     Dosage: started 20 days prior to injury
     Route: 048
  6. ACTIVIT-MULTIVITAMIN [Concomitant]
     Dosage: UNK
     Route: 048
     Dates: start: 20110310
  7. CALCIUM WITH MAGNESIUM [Concomitant]
     Dosage: UNK
     Dates: start: 20110320
  8. ACETAMINOPHEN [Concomitant]
     Dosage: 500 mg, UNK
     Route: 048
     Dates: start: 20110320
  9. MULTIVITES WITH FE [Concomitant]
     Dosage: UNK
     Route: 048
     Dates: start: 20110320

REACTIONS (16)
  - Pulmonary embolism [Recovered/Resolved]
  - Pulmonary embolism [None]
  - Chest pain [Recovered/Resolved]
  - Dyspnoea [Recovered/Resolved]
  - Injury [Recovered/Resolved]
  - Pain [Recovered/Resolved]
  - Disturbance in attention [None]
  - Fatigue [Recovered/Resolved]
  - Palpitations [None]
  - Chest pain [None]
  - Anxiety [None]
  - Oedema peripheral [Recovered/Resolved]
  - Pain in extremity [None]
  - Cough [Recovered/Resolved]
  - Dizziness [Recovered/Resolved]
  - Palpitations [Recovered/Resolved]
